FAERS Safety Report 5528535-9 (Version None)
Quarter: 2007Q4

REPORT INFORMATION
  Report Type: 
  Country: None (occurrence: None)
  Receive Date: 20071121
  Receipt Date: 20071105
  Transmission Date: 20080405
  Serious: Yes (Life-Threatening, Hospitalization)
  Sender: FDA-Public Use
  Company Number: 002#8#2007-00327

PATIENT
  Age: 39 Year
  Sex: Female

DRUGS (4)
  1. ALPRAZOLAM [Suspect]
     Dosage: 1 IN 1 D
  2. AMODIAQUINE [Suspect]
     Indication: MALARIA PROPHYLAXIS
     Dosage: 200 MG, 1 IN 1 W
     Dates: start: 20030224, end: 20030529
  3. ACETAMINOPHEN [Suspect]
     Indication: HEADACHE
     Dosage: 500 MG, 2 IN 1 D
  4. CYPROHEPTADINE HCL [Suspect]
     Indication: HEPATITIS A

REACTIONS (6)
  - CHOLECYSTITIS [None]
  - ENCEPHALOPATHY [None]
  - HEADACHE [None]
  - HEPATIC ENCEPHALOPATHY [None]
  - HEPATITIS FULMINANT [None]
  - LIVER TRANSPLANT [None]
